FAERS Safety Report 7292299-1 (Version None)
Quarter: 2011Q1

REPORT INFORMATION
  Report Type: 
  Country: None (occurrence: None)
  Receive Date: 20110215
  Receipt Date: 20110214
  Transmission Date: 20110831
  Serious: Yes (Death)
  Sender: FDA-Public Use
  Company Number: PHHO2011IT02764

PATIENT
  Sex: Male
  Weight: 80 kg

DRUGS (1)
  1. GLEEVEC [Suspect]
     Indication: CHRONIC MYELOID LEUKAEMIA
     Dosage: 400 MG, UNK
     Route: 048
     Dates: start: 20050617

REACTIONS (5)
  - DISEASE PROGRESSION [None]
  - CARDIAC FAILURE CONGESTIVE [None]
  - MULTI-ORGAN FAILURE [None]
  - HEART TRANSPLANT [None]
  - CARDIOMYOPATHY [None]
